FAERS Safety Report 9742695 (Version 1)
Quarter: 2013Q4

REPORT INFORMATION
  Report Type: Spontaneous
  Country: US (occurrence: US)
  Receive Date: 20131210
  Receipt Date: 20131210
  Transmission Date: 20140711
  Serious: No
  Sender: FDA-Public Use
  Company Number: US-GILEAD-2009-0025730

PATIENT
  Sex: Female
  Weight: 85.73 kg

DRUGS (9)
  1. LETAIRIS [Suspect]
     Indication: PULMONARY ARTERIAL HYPERTENSION
     Route: 048
     Dates: start: 20091113
  2. REVATIO [Concomitant]
  3. TEKTURNA [Concomitant]
  4. BENICAR [Concomitant]
  5. ADVAIR [Concomitant]
  6. SPIRIVA [Concomitant]
  7. SINGULAIR [Concomitant]
  8. BONIVA [Concomitant]
  9. NEXIUM [Concomitant]

REACTIONS (2)
  - Headache [Unknown]
  - Local swelling [Unknown]
